FAERS Safety Report 6819368-1 (Version None)
Quarter: 2010Q3

REPORT INFORMATION
  Report Type: 
  Country: None (occurrence: None)
  Receive Date: 20100707
  Receipt Date: 20100701
  Transmission Date: 20110219
  Serious: Yes (Death, Hospitalization)
  Sender: FDA-Public Use
  Company Number: JP-BAYER-200914282BYL

PATIENT
  Age: 80 Year
  Sex: Male
  Weight: 44 kg

DRUGS (12)
  1. NEXAVAR [Suspect]
     Indication: RENAL CELL CARCINOMA
     Dosage: UNIT DOSE: 200 MG
     Route: 048
     Dates: start: 20090220, end: 20090625
  2. NEXAVAR [Suspect]
     Dosage: UNIT DOSE: 200 MG
     Route: 048
     Dates: start: 20090626, end: 20091019
  3. WARFARIN [Concomitant]
     Route: 048
     Dates: start: 20090324
  4. WARFARIN [Concomitant]
     Route: 048
     Dates: start: 20090224, end: 20090323
  5. JU-KAMA [Concomitant]
     Route: 048
     Dates: start: 20090303
  6. AMLODIN [Concomitant]
     Route: 048
     Dates: start: 20090310, end: 20090323
  7. AMLODIN [Concomitant]
     Route: 048
     Dates: start: 20090324
  8. LOPEMIN [Concomitant]
     Route: 048
     Dates: start: 20090528
  9. LORCAM [Concomitant]
     Route: 048
     Dates: start: 20090716
  10. PARIET [Concomitant]
     Route: 048
     Dates: start: 20090716
  11. TAKEPRON [Concomitant]
     Route: 048
     Dates: start: 20090825
  12. DECADRON [Concomitant]
     Route: 048
     Dates: start: 20091008

REACTIONS (2)
  - PANCYTOPENIA [None]
  - RENAL CELL CARCINOMA [None]
